FAERS Safety Report 5118866-9 (Version None)
Quarter: 2006Q3

REPORT INFORMATION
  Report Type: 
  Country: None (occurrence: None)
  Receive Date: 20060927
  Receipt Date: 20060918
  Transmission Date: 20061208
  Serious: Yes (Hospitalization)
  Sender: FDA-Public Use
  Company Number: 236080K06USA

PATIENT
  Age: 41 Year
  Sex: Male

DRUGS (3)
  1. REBIF [Suspect]
     Indication: MULTIPLE SCLEROSIS
     Dosage: 22 MCG, 3 IN 1 WEEKS, SUBCUTANEOUS
     Route: 058
     Dates: start: 20060829, end: 20060913
  2. LIPITOR [Concomitant]
  3. ASPIRIN [Concomitant]

REACTIONS (1)
  - CONVULSION [None]
